FAERS Safety Report 9633581 (Version 1)
Quarter: 2013Q4

REPORT INFORMATION
  Report Type: Spontaneous
  Country: GB (occurrence: None)
  Receive Date: 20131017
  Receipt Date: 20131017
  Transmission Date: 20140711
  Serious: Yes (Other)
  Sender: FDA-Public Use
  Company Number: COL_14484_2013

PATIENT
  Age: 3 Year
  Sex: Male

DRUGS (1)
  1. DURAPHAT [Suspect]
     Indication: PROPHYLAXIS
     Route: 048
     Dates: start: 2013, end: 2013

REACTIONS (3)
  - Malaise [None]
  - Vomiting [None]
  - Lip swelling [None]
